FAERS Safety Report 6689343-9 (Version None)
Quarter: 2010Q2

REPORT INFORMATION
  Report Type: 
  Country: None (occurrence: None)
  Receive Date: 20100419
  Receipt Date: 20100419
  Transmission Date: 20101027
  Serious: No
  Sender: FDA-Public Use
  Company Number: None

PATIENT
  Age: 2 Year
  Sex: Female
  Weight: 9.9791 kg

DRUGS (2)
  1. MOTRIN [Suspect]
     Indication: OROPHARYNGEAL PAIN
     Dosage: 1 TSP EVERY 5 HOURS PO
     Route: 048
     Dates: start: 20100416, end: 20100417
  2. MOTRIN [Suspect]
     Indication: PYREXIA
     Dosage: 1 TSP EVERY 5 HOURS PO
     Route: 048
     Dates: start: 20100416, end: 20100417

REACTIONS (1)
  - OROPHARYNGEAL PAIN [None]
